FAERS Safety Report 22020035 (Version 1)
Quarter: 2023Q1

REPORT INFORMATION
  Report Type: Spontaneous
  Country: SI (occurrence: SI)
  Receive Date: 20230222
  Receipt Date: 20230222
  Transmission Date: 20230418
  Serious: Yes (Hospitalization)
  Sender: FDA-Public Use
  Company Number: SI-Merck Healthcare KGaA-9380696

PATIENT
  Age: 2 Year

DRUGS (2)
  1. MIRTAZAPINE [Suspect]
     Active Substance: MIRTAZAPINE
     Indication: Product used for unknown indication
     Dosage: UNK, 1 TOTAL
     Route: 065
  2. BISOPROLOL [Suspect]
     Active Substance: BISOPROLOL
     Indication: Product used for unknown indication
     Dosage: UNK, 1 TOTAL
     Route: 065

REACTIONS (3)
  - Heart rate increased [Unknown]
  - Oxygen saturation decreased [Unknown]
  - Accidental exposure to product by child [Unknown]
